FAERS Safety Report 6445199-0 (Version None)
Quarter: 2009Q4

REPORT INFORMATION
  Report Type: 
  Country: None (occurrence: None)
  Receive Date: 20091112
  Receipt Date: 20091030
  Transmission Date: 20100525
  Serious: Yes (Hospitalization)
  Sender: FDA-Public Use
  Company Number: 2009-04559

PATIENT
  Age: 63 Year
  Sex: Female
  Weight: 88.3 kg

DRUGS (2)
  1. VELCADE [Suspect]
     Indication: MULTIPLE MYELOMA
     Dosage: 1.6 MG/M2
     Dates: start: 20090910, end: 20091022
  2. CCI-779(TEMSIROLIMUS) INJECTION [Suspect]
     Indication: MULTIPLE MYELOMA
     Dosage: 25 MG
     Dates: start: 20090910, end: 20091022

REACTIONS (1)
  - INFLUENZA [None]
